FAERS Safety Report 12145369 (Version 2)
Quarter: 2016Q1

REPORT INFORMATION
  Report Type: Spontaneous
  Country: GB (occurrence: GB)
  Receive Date: 20160304
  Receipt Date: 20160307
  Transmission Date: 20160526
  Serious: Yes (Hospitalization)
  Sender: FDA-Public Use
  Company Number: GB-009507513-1602GBR012826

PATIENT
  Sex: Female

DRUGS (3)
  1. DEXAMETHASONE. [Suspect]
     Active Substance: DEXAMETHASONE
     Indication: UVEITIS
     Dosage: 1 DOSAGE FORMS, 1 IN 2 HR
     Route: 047
     Dates: start: 201311, end: 201311
  2. DEXAMETHASONE. [Suspect]
     Active Substance: DEXAMETHASONE
     Dosage: INCASE OF FLARE UP, 1 DOSAGE FROM, 1 IN 1HR
     Route: 047
     Dates: start: 201311, end: 201311
  3. CHLORAMPHENICOL [Concomitant]
     Active Substance: CHLORAMPHENICOL
     Indication: UVEITIS
     Dosage: 2  IN 1 HR
     Route: 065

REACTIONS (10)
  - Heart rate increased [Unknown]
  - Keratopathy [Unknown]
  - Eye discharge [Unknown]
  - Gastrointestinal disorder [Unknown]
  - Dry eye [Unknown]
  - Blood pressure decreased [Unknown]
  - Ocular discomfort [Unknown]
  - Eye pain [Unknown]
  - Blood sodium decreased [Unknown]
  - Blood chloride decreased [Unknown]
